FAERS Safety Report 5533017-4 (Version None)
Quarter: 2007Q4

REPORT INFORMATION
  Report Type: 
  Country: None (occurrence: None)
  Receive Date: 20071204
  Receipt Date: 20071120
  Transmission Date: 20080405
  Serious: Yes (Hospitalization)
  Sender: FDA-Public Use
  Company Number: GB-RANBAXY-2007RR-11605

PATIENT

DRUGS (3)
  1. AMPICILLIN CAPSULES BP 250MG [Suspect]
     Indication: PROSTATITIS
  2. SEPTRIN [Suspect]
     Indication: PROSTATITIS
  3. AMOXICILLIN [Suspect]
     Indication: PROSTATITIS

REACTIONS (4)
  - ABDOMINAL DISTENSION [None]
  - ABDOMINAL PAIN [None]
  - COLITIS [None]
  - DIARRHOEA [None]
